FAERS Safety Report 6870951-7 (Version None)
Quarter: 2010Q3

REPORT INFORMATION
  Report Type: 
  Country: None (occurrence: None)
  Receive Date: 20100723
  Receipt Date: 20100721
  Transmission Date: 20110219
  Serious: Yes (Hospitalization, Other)
  Sender: FDA-Public Use
  Company Number: US-BRISTOL-MYERS SQUIBB COMPANY-15202971

PATIENT
  Age: 61 Year
  Sex: Female

DRUGS (9)
  1. COUMADIN [Suspect]
     Indication: PULMONARY EMBOLISM
     Dosage: THE PATIENT STARTED COUMADIN ON UNKNOWN DATE AND AGAIN STARTED IT IN JAN-2010
     Route: 065
  2. COUMADIN [Suspect]
     Indication: DEEP VEIN THROMBOSIS
     Dosage: THE PATIENT STARTED COUMADIN ON UNKNOWN DATE AND AGAIN STARTED IT IN JAN-2010
     Route: 065
  3. LOVENOX [Suspect]
     Indication: PULMONARY EMBOLISM
  4. LOVENOX [Suspect]
     Indication: DEEP VEIN THROMBOSIS
  5. VELCADE [Concomitant]
     Indication: MULTIPLE MYELOMA
     Route: 042
     Dates: start: 20090924, end: 20100118
  6. DECADRON [Concomitant]
     Indication: MULTIPLE MYELOMA
     Route: 065
     Dates: start: 20090924, end: 20100118
  7. KYTRIL [Concomitant]
     Indication: MULTIPLE MYELOMA
     Route: 065
  8. ASPIRIN [Concomitant]
     Indication: MULTIPLE MYELOMA
     Route: 065
     Dates: start: 20090923, end: 20100118
  9. ALBUTEROL [Concomitant]
     Indication: COUGH
     Route: 065
     Dates: start: 20100601

REACTIONS (3)
  - BLOOD URIC ACID INCREASED [None]
  - INTERNATIONAL NORMALISED RATIO INCREASED [None]
  - RENAL IMPAIRMENT [None]
